FAERS Safety Report 4537912-4 (Version None)
Quarter: 2004Q4

REPORT INFORMATION
  Report Type: 
  Country: None (occurrence: None)
  Receive Date: 20041224
  Receipt Date: 20041116
  Transmission Date: 20050328
  Serious: Yes (Life-Threatening, Hospitalization)
  Sender: FDA-Public Use
  Company Number: US-MERCK-0411USA02876

PATIENT
  Age: 32 Year
  Sex: Male
  Weight: 97 kg

DRUGS (6)
  1. VIOXX [Suspect]
     Indication: ARTHRALGIA
     Route: 048
     Dates: start: 19991201
  2. VIOXX [Suspect]
     Route: 048
     Dates: start: 20010101
  3. VIOXX [Suspect]
     Route: 048
     Dates: start: 20020620
  4. VIOXX [Suspect]
     Route: 048
     Dates: start: 20020625
  5. VIOXX [Suspect]
     Route: 048
     Dates: start: 20040716, end: 20040801
  6. DRYSOL [Concomitant]
     Route: 065

REACTIONS (23)
  - ANXIETY [None]
  - ATRIAL FIBRILLATION [None]
  - BLOOD CHOLESTEROL INCREASED [None]
  - CARDIAC FAILURE CONGESTIVE [None]
  - CONGESTIVE CARDIOMYOPATHY [None]
  - CORONARY ARTERY DISEASE [None]
  - DEPRESSION [None]
  - DRUG INEFFECTIVE [None]
  - DYSPNOEA [None]
  - HEADACHE [None]
  - HYPERHIDROSIS [None]
  - HYPERLIPIDAEMIA [None]
  - INSOMNIA [None]
  - MYOCARDIAL INFARCTION [None]
  - PALPITATIONS [None]
  - PERICARDIAL EFFUSION [None]
  - PERICARDITIS [None]
  - SEASONAL ALLERGY [None]
  - SYNCOPE [None]
  - SYNCOPE VASOVAGAL [None]
  - TENDON INJURY [None]
  - VENTRICULAR TACHYCARDIA [None]
  - VIRAL INFECTION [None]
